FAERS Safety Report 23150547 (Version 1)
Quarter: 2023Q4

REPORT INFORMATION
  Report Type: Spontaneous
  Country: US (occurrence: None)
  Receive Date: 20231105
  Receipt Date: 20231105
  Transmission Date: 20240110
  Serious: Yes (Disabling, Other)
  Sender: FDA-Public Use
  Company Number: None

PATIENT
  Age: 80 Year
  Sex: Female
  Weight: 64.35 kg

DRUGS (15)
  1. MYRBETRIQ [Suspect]
     Active Substance: MIRABEGRON
     Indication: Hypertonic bladder
     Dosage: OTHER QUANTITY : 1 TABLET(S);?FREQUENCY : DAILY;?
     Route: 048
     Dates: start: 20231010, end: 20231012
  2. VALSARTAN [Concomitant]
     Active Substance: VALSARTAN
  3. SPIRONOLACTONE [Concomitant]
     Active Substance: SPIRONOLACTONE
  4. VITAMIN D2 [Concomitant]
     Active Substance: ERGOCALCIFEROL
  5. FLUTICASONE PROPIONATE [Concomitant]
     Active Substance: FLUTICASONE PROPIONATE
  6. PREMARIN VAGINAL [Concomitant]
     Active Substance: ESTROGENS, CONJUGATED
  7. FLUCONAZOLE [Concomitant]
     Active Substance: FLUCONAZOLE
  8. ROSUVASTATIN [Concomitant]
     Active Substance: ROSUVASTATIN
  9. Antihistamine eyedrops [Concomitant]
  10. VITAMIN D2 [Concomitant]
     Active Substance: ERGOCALCIFEROL
  11. D-Mannose Herbal Complex [Concomitant]
  12. Qunol Ultra Q10 [Concomitant]
  13. Cetrizine Hychloride [Concomitant]
  14. VITAMIN C [Concomitant]
     Active Substance: ASCORBIC ACID
  15. Psyllium fiber [Concomitant]

REACTIONS (1)
  - Blood pressure increased [None]

NARRATIVE: CASE EVENT DATE: 20231012
